FAERS Safety Report 13960925 (Version 3)
Quarter: 2017Q4

REPORT INFORMATION
  Report Type: Spontaneous
  Country: HU (occurrence: HU)
  Receive Date: 20170912
  Receipt Date: 20171120
  Transmission Date: 20180320
  Serious: Yes (Life-Threatening, Hospitalization, Other)
  Sender: FDA-Public Use
  Company Number: HU-JNJFOC-20170909861

PATIENT
  Age: 77 Year

DRUGS (4)
  1. DIHYDROXYALUMINUM SODIUM CARBONATE [Concomitant]
     Active Substance: DIHYDROXYALUMINUM SODIUM CARBONATE
     Route: 065
  2. APRANAX [Concomitant]
     Active Substance: NAPROXEN
     Route: 065
  3. XARELTO [Suspect]
     Active Substance: RIVAROXABAN
     Indication: DEEP VEIN THROMBOSIS
     Route: 048
  4. XARELTO [Suspect]
     Active Substance: RIVAROXABAN
     Indication: DEEP VEIN THROMBOSIS
     Route: 048
     Dates: start: 201610

REACTIONS (5)
  - Pneumonia [Recovered/Resolved]
  - Confusional state [Not Recovered/Not Resolved]
  - Brain oedema [Not Recovered/Not Resolved]
  - Haemorrhagic stroke [Recovering/Resolving]
  - Pneumonia [Not Recovered/Not Resolved]

NARRATIVE: CASE EVENT DATE: 20170827
